FAERS Safety Report 18079845 (Version 5)
Quarter: 2022Q4

REPORT INFORMATION
  Report Type: Spontaneous
  Country: US (occurrence: None)
  Receive Date: 20200728
  Receipt Date: 20221108
  Transmission Date: 20230113
  Serious: Yes (Life-Threatening, Hospitalization, Other)
  Sender: FDA-Public Use
  Company Number: 2020SE93141

PATIENT
  Age: 831 Month
  Sex: Female
  Weight: 112.5 kg

DRUGS (154)
  1. FARXIGA [Suspect]
     Active Substance: DAPAGLIFLOZIN PROPANEDIOL
     Indication: Type 2 diabetes mellitus
     Route: 048
     Dates: start: 20170925
  2. FARXIGA [Suspect]
     Active Substance: DAPAGLIFLOZIN PROPANEDIOL
     Indication: Weight decreased
     Route: 048
     Dates: start: 20170925
  3. FARXIGA [Suspect]
     Active Substance: DAPAGLIFLOZIN PROPANEDIOL
     Indication: Hypotension
     Route: 048
     Dates: start: 20170925
  4. FARXIGA [Suspect]
     Active Substance: DAPAGLIFLOZIN PROPANEDIOL
     Indication: Type 2 diabetes mellitus
     Dosage: 10.0MG UNKNOWN
     Route: 048
     Dates: start: 20170404
  5. FARXIGA [Suspect]
     Active Substance: DAPAGLIFLOZIN PROPANEDIOL
     Indication: Weight decreased
     Dosage: 10.0MG UNKNOWN
     Route: 048
     Dates: start: 20170404
  6. FARXIGA [Suspect]
     Active Substance: DAPAGLIFLOZIN PROPANEDIOL
     Indication: Hypotension
     Dosage: 10.0MG UNKNOWN
     Route: 048
     Dates: start: 20170404
  7. FARXIGA [Suspect]
     Active Substance: DAPAGLIFLOZIN PROPANEDIOL
     Indication: Type 2 diabetes mellitus
     Dosage: 10.0MG UNKNOWN
     Route: 048
     Dates: start: 20180815
  8. FARXIGA [Suspect]
     Active Substance: DAPAGLIFLOZIN PROPANEDIOL
     Indication: Weight decreased
     Dosage: 10.0MG UNKNOWN
     Route: 048
     Dates: start: 20180815
  9. FARXIGA [Suspect]
     Active Substance: DAPAGLIFLOZIN PROPANEDIOL
     Indication: Hypotension
     Dosage: 10.0MG UNKNOWN
     Route: 048
     Dates: start: 20180815
  10. FARXIGA [Suspect]
     Active Substance: DAPAGLIFLOZIN PROPANEDIOL
     Indication: Type 2 diabetes mellitus
     Dosage: 10.0MG UNKNOWN
     Route: 048
     Dates: start: 20180207, end: 20200225
  11. FARXIGA [Suspect]
     Active Substance: DAPAGLIFLOZIN PROPANEDIOL
     Indication: Weight decreased
     Dosage: 10.0MG UNKNOWN
     Route: 048
     Dates: start: 20180207, end: 20200225
  12. FARXIGA [Suspect]
     Active Substance: DAPAGLIFLOZIN PROPANEDIOL
     Indication: Hypotension
     Dosage: 10.0MG UNKNOWN
     Route: 048
     Dates: start: 20180207, end: 20200225
  13. FARXIGA [Suspect]
     Active Substance: DAPAGLIFLOZIN PROPANEDIOL
     Indication: Type 2 diabetes mellitus
     Dosage: 10.0MG UNKNOWN
     Route: 048
  14. FARXIGA [Suspect]
     Active Substance: DAPAGLIFLOZIN PROPANEDIOL
     Indication: Weight decreased
     Dosage: 10.0MG UNKNOWN
     Route: 048
  15. FARXIGA [Suspect]
     Active Substance: DAPAGLIFLOZIN PROPANEDIOL
     Indication: Hypotension
     Dosage: 10.0MG UNKNOWN
     Route: 048
  16. FARXIGA [Suspect]
     Active Substance: DAPAGLIFLOZIN PROPANEDIOL
     Indication: Type 2 diabetes mellitus
     Dosage: UNKNOWN
     Route: 048
     Dates: start: 20180326
  17. FARXIGA [Suspect]
     Active Substance: DAPAGLIFLOZIN PROPANEDIOL
     Indication: Weight decreased
     Dosage: UNKNOWN
     Route: 048
     Dates: start: 20180326
  18. FARXIGA [Suspect]
     Active Substance: DAPAGLIFLOZIN PROPANEDIOL
     Indication: Hypotension
     Dosage: UNKNOWN
     Route: 048
     Dates: start: 20180326
  19. FARXIGA [Suspect]
     Active Substance: DAPAGLIFLOZIN PROPANEDIOL
     Indication: Type 2 diabetes mellitus
     Dosage: UNKNOWN
     Route: 048
     Dates: start: 20180421
  20. FARXIGA [Suspect]
     Active Substance: DAPAGLIFLOZIN PROPANEDIOL
     Indication: Weight decreased
     Dosage: UNKNOWN
     Route: 048
     Dates: start: 20180421
  21. FARXIGA [Suspect]
     Active Substance: DAPAGLIFLOZIN PROPANEDIOL
     Indication: Hypotension
     Dosage: UNKNOWN
     Route: 048
     Dates: start: 20180421
  22. FARXIGA [Suspect]
     Active Substance: DAPAGLIFLOZIN PROPANEDIOL
     Indication: Type 2 diabetes mellitus
     Dosage: UNKNOWN
     Route: 048
     Dates: start: 20180519
  23. FARXIGA [Suspect]
     Active Substance: DAPAGLIFLOZIN PROPANEDIOL
     Indication: Weight decreased
     Dosage: UNKNOWN
     Route: 048
     Dates: start: 20180519
  24. FARXIGA [Suspect]
     Active Substance: DAPAGLIFLOZIN PROPANEDIOL
     Indication: Hypotension
     Dosage: UNKNOWN
     Route: 048
     Dates: start: 20180519
  25. FARXIGA [Suspect]
     Active Substance: DAPAGLIFLOZIN PROPANEDIOL
     Indication: Type 2 diabetes mellitus
     Dosage: UNKNOWN
     Route: 048
     Dates: start: 20180616
  26. FARXIGA [Suspect]
     Active Substance: DAPAGLIFLOZIN PROPANEDIOL
     Indication: Weight decreased
     Dosage: UNKNOWN
     Route: 048
     Dates: start: 20180616
  27. FARXIGA [Suspect]
     Active Substance: DAPAGLIFLOZIN PROPANEDIOL
     Indication: Hypotension
     Dosage: UNKNOWN
     Route: 048
     Dates: start: 20180616
  28. FARXIGA [Suspect]
     Active Substance: DAPAGLIFLOZIN PROPANEDIOL
     Indication: Type 2 diabetes mellitus
     Dosage: UNKNOWN
     Route: 048
     Dates: start: 20180716
  29. FARXIGA [Suspect]
     Active Substance: DAPAGLIFLOZIN PROPANEDIOL
     Indication: Weight decreased
     Dosage: UNKNOWN
     Route: 048
     Dates: start: 20180716
  30. FARXIGA [Suspect]
     Active Substance: DAPAGLIFLOZIN PROPANEDIOL
     Indication: Hypotension
     Dosage: UNKNOWN
     Route: 048
     Dates: start: 20180716
  31. FARXIGA [Suspect]
     Active Substance: DAPAGLIFLOZIN PROPANEDIOL
     Indication: Type 2 diabetes mellitus
     Dosage: UNKNOWN
     Route: 048
     Dates: start: 20180815
  32. FARXIGA [Suspect]
     Active Substance: DAPAGLIFLOZIN PROPANEDIOL
     Indication: Weight decreased
     Dosage: UNKNOWN
     Route: 048
     Dates: start: 20180815
  33. FARXIGA [Suspect]
     Active Substance: DAPAGLIFLOZIN PROPANEDIOL
     Indication: Hypotension
     Dosage: UNKNOWN
     Route: 048
     Dates: start: 20180815
  34. FARXIGA [Suspect]
     Active Substance: DAPAGLIFLOZIN PROPANEDIOL
     Indication: Type 2 diabetes mellitus
     Dosage: UNKNOWN
     Route: 048
     Dates: end: 201808
  35. FARXIGA [Suspect]
     Active Substance: DAPAGLIFLOZIN PROPANEDIOL
     Indication: Weight decreased
     Dosage: UNKNOWN
     Route: 048
     Dates: end: 201808
  36. FARXIGA [Suspect]
     Active Substance: DAPAGLIFLOZIN PROPANEDIOL
     Indication: Hypotension
     Dosage: UNKNOWN
     Route: 048
     Dates: end: 201808
  37. SODIUM CHLORIDE [Concomitant]
     Active Substance: SODIUM CHLORIDE
  38. POTASSIUM CHLORIDE [Concomitant]
     Active Substance: POTASSIUM CHLORIDE
  39. PROPOFOL [Concomitant]
     Active Substance: PROPOFOL
  40. LINEZOLID [Concomitant]
     Active Substance: LINEZOLID
  41. CLEOCIN [Concomitant]
     Active Substance: CLINDAMYCIN PHOSPHATE
  42. INSULIN NOS [Concomitant]
     Active Substance: INSULIN NOS
  43. VANCOCIN [Concomitant]
     Active Substance: VANCOMYCIN HYDROCHLORIDE
  44. FLAGYL [Concomitant]
     Active Substance: METRONIDAZOLE\METRONIDAZOLE HYDROCHLORIDE
  45. GLUCAGON [Concomitant]
     Active Substance: GLUCAGON
  46. DEXTROSE [Concomitant]
     Active Substance: DEXTROSE
  47. SODIUM BICARBONATE [Concomitant]
     Active Substance: SODIUM BICARBONATE
  48. HYDROMORPHONE HCL [Concomitant]
     Active Substance: HYDROMORPHONE HYDROCHLORIDE
  49. ACETAMINOPHEN [Concomitant]
     Active Substance: ACETAMINOPHEN
  50. FUROSEMIDE [Concomitant]
     Active Substance: FUROSEMIDE
  51. NOREPINEPHRINE BITARTRATE [Concomitant]
     Active Substance: NOREPINEPHRINE BITARTRATE
  52. CHLORHEXIDINE GLUCONATE [Concomitant]
     Active Substance: CHLORHEXIDINE GLUCONATE
  53. WHITE PETROLATUM-MINERAL OIL [Concomitant]
  54. VITAMINS [Concomitant]
     Active Substance: VITAMINS
  55. FENOFIBRATE [Concomitant]
     Active Substance: FENOFIBRATE
  56. TRAZODONE [Concomitant]
     Active Substance: TRAZODONE HYDROCHLORIDE
  57. SILDENAFIL [Concomitant]
     Active Substance: SILDENAFIL
  58. PRAMIPEXOLE [Concomitant]
     Active Substance: PRAMIPEXOLE
  59. TOPIRAMATE [Concomitant]
     Active Substance: TOPIRAMATE
  60. RILUZOLE [Concomitant]
     Active Substance: RILUZOLE
  61. DICYCLOMINE [Concomitant]
     Active Substance: DICYCLOMINE HYDROCHLORIDE
  62. AZELASTINE [Concomitant]
     Active Substance: AZELASTINE
  63. SULFAMETHOXAZOLE\TRIMETHOPRIM [Concomitant]
     Active Substance: SULFAMETHOXAZOLE\TRIMETHOPRIM
  64. ZANTAC [Concomitant]
     Active Substance: RANITIDINE HYDROCHLORIDE
  65. HYDROCHLOROTHIAZIDE [Concomitant]
     Active Substance: HYDROCHLOROTHIAZIDE
  66. BUPROPION [Concomitant]
     Active Substance: BUPROPION
  67. PROAIR HFA [Concomitant]
     Active Substance: ALBUTEROL SULFATE
  68. MELOXICAM [Concomitant]
     Active Substance: MELOXICAM
  69. HYDROCODONE [Concomitant]
     Active Substance: HYDROCODONE
  70. OXYCODONE [Concomitant]
     Active Substance: OXYCODONE
  71. SINGULAIR [Concomitant]
     Active Substance: MONTELUKAST SODIUM
  72. ZOLPIDEM [Concomitant]
     Active Substance: ZOLPIDEM TARTRATE
  73. ERYTHROMYCIN [Concomitant]
     Active Substance: ERYTHROMYCIN
  74. CELECOXIB [Concomitant]
     Active Substance: CELECOXIB
  75. FOLIC ACID [Concomitant]
     Active Substance: FOLIC ACID
  76. ACYCLOVIR [Concomitant]
     Active Substance: ACYCLOVIR
  77. TRIAMCINOLONE [Concomitant]
     Active Substance: TRIAMCINOLONE
  78. BYETTA [Concomitant]
     Active Substance: EXENATIDE
     Indication: Diabetes mellitus
  79. VALACYCLOVIR [Concomitant]
     Active Substance: VALACYCLOVIR HYDROCHLORIDE
  80. INVOKANA [Concomitant]
     Active Substance: CANAGLIFLOZIN
  81. VITAMIN D [Concomitant]
     Active Substance: VITAMIN D NOS
  82. WARFARIN SODIUM [Concomitant]
     Active Substance: WARFARIN SODIUM
  83. PROVENTIL [Concomitant]
     Active Substance: ALBUTEROL
  84. DEXTROMETHORPHAN HYDROBROMIDE/PARACETAMOL/BROMPHENIRAMINE MALEATE [Concomitant]
  85. VICTOZA [Concomitant]
     Active Substance: LIRAGLUTIDE
     Indication: Diabetes mellitus
  86. SERTRALINE [Concomitant]
     Active Substance: SERTRALINE HYDROCHLORIDE
  87. REPAGLINIDE [Concomitant]
     Active Substance: REPAGLINIDE
     Indication: Diabetes mellitus
  88. AMLODIPINE BESYLATE [Concomitant]
     Active Substance: AMLODIPINE BESYLATE
  89. METOPROLOL TARTRATE [Concomitant]
     Active Substance: METOPROLOL TARTRATE
     Indication: Hypertension
  90. ESCITALOPRAM [Concomitant]
     Active Substance: ESCITALOPRAM OXALATE
  91. PANTOPRAZOLE [Concomitant]
     Active Substance: PANTOPRAZOLE
  92. ACETAMINOP-CODEINE [Concomitant]
  93. CARAFATE [Concomitant]
     Active Substance: SUCRALFATE
  94. LIDOCAINE [Concomitant]
     Active Substance: LIDOCAINE
  95. LANTUS SOLOSTAR [Concomitant]
     Active Substance: INSULIN GLARGINE
     Indication: Diabetes mellitus
  96. DEXAMETHASONE [Concomitant]
     Active Substance: DEXAMETHASONE
  97. FENTANYL [Concomitant]
     Active Substance: FENTANYL
  98. METRONIDAZOLE [Concomitant]
     Active Substance: METRONIDAZOLE
  99. PHENYLEPHRINE [Concomitant]
     Active Substance: PHENYLEPHRINE HYDROCHLORIDE
  100. LACTIC ACID [Concomitant]
     Active Substance: LACTIC ACID
  101. MAGNESIUM [Concomitant]
     Active Substance: MAGNESIUM
  102. PHOSPHORUS [Concomitant]
     Active Substance: PHOSPHORUS
  103. COENZYME Q10 [Concomitant]
     Active Substance: DIETARY SUPPLEMENT\UBIDECARENONE
  104. RED YEAST RICE EXTRACT [Concomitant]
  105. COLLAGEN/ASTAXANTHIN [Concomitant]
  106. DIETARY SUPPLEMENT [Concomitant]
     Active Substance: DIETARY SUPPLEMENT
  107. LEVEMIR [Concomitant]
     Active Substance: INSULIN DETEMIR
  108. KEFLEX [Concomitant]
     Active Substance: CEPHALEXIN
  109. VANCOMYCIN [Concomitant]
     Active Substance: VANCOMYCIN
  110. ENOXAPARIN [Concomitant]
     Active Substance: ENOXAPARIN
  111. NOREPINEPHRINE [Concomitant]
     Active Substance: NOREPINEPHRINE
  112. CHLORHEXIDINE [Concomitant]
     Active Substance: CHLORHEXIDINE
  113. PIPERACILLIN AND TAZOBACTAM [Concomitant]
     Active Substance: PIPERACILLIN SODIUM\TAZOBACTAM SODIUM
  114. MONTELUKAST SODIUM [Concomitant]
     Active Substance: MONTELUKAST SODIUM
  115. SERTRALINE HYDROCHLORIDE [Concomitant]
     Active Substance: SERTRALINE HYDROCHLORIDE
  116. FLUCONAZOLE [Concomitant]
     Active Substance: FLUCONAZOLE
  117. NOVOLOG [Concomitant]
     Active Substance: INSULIN ASPART
     Indication: Diabetes mellitus
  118. NYSTATIN [Concomitant]
     Active Substance: NYSTATIN
  119. GABAPENTIN [Concomitant]
     Active Substance: GABAPENTIN
  120. PREVNAR [Concomitant]
     Active Substance: PNEUMOCOCCAL 7-VALENT CONJUGATE VACCINE (DIPHTHERIA CRM197 PROTEIN)
  121. GLUCOPHAGE XR [Concomitant]
     Active Substance: METFORMIN HYDROCHLORIDE
  122. ZEMURON [Concomitant]
     Active Substance: ROCURONIUM BROMIDE
  123. JANUMET XR [Concomitant]
     Active Substance: METFORMIN HYDROCHLORIDE\SITAGLIPTIN PHOSPHATE
     Indication: Diabetes mellitus
  124. PRILOSEC [Concomitant]
     Active Substance: OMEPRAZOLE MAGNESIUM
     Indication: Gastrooesophageal reflux disease
  125. NIZORAL [Concomitant]
     Active Substance: KETOCONAZOLE
  126. GLUCOTROL [Concomitant]
     Active Substance: GLIPIZIDE
  127. ACETAMINOPHEN\HYDROCODONE BITARTRATE [Concomitant]
     Active Substance: ACETAMINOPHEN\HYDROCODONE BITARTRATE
  128. LOVENOX [Concomitant]
     Active Substance: ENOXAPARIN SODIUM
  129. METFORMIN HYDROCHLORIDE [Concomitant]
     Active Substance: METFORMIN HYDROCHLORIDE
     Indication: Diabetes mellitus
  130. TOPROL XL [Concomitant]
     Active Substance: METOPROLOL SUCCINATE
  131. LISINOPRIL [Concomitant]
     Active Substance: LISINOPRIL
  132. ASPIRIN [Concomitant]
     Active Substance: ASPIRIN
  133. CELESTONE SOLUSPAN [Concomitant]
     Active Substance: BETAMETHASONE ACETATE\BETAMETHASONE SODIUM PHOSPHATE
  134. MARCAINE [Concomitant]
     Active Substance: BUPIVACAINE HYDROCHLORIDE
  135. VITAMIN B12 [Concomitant]
     Active Substance: CYANOCOBALAMIN
  136. COBAMAMIDE/FERRITIN/CALCIUM FOLINATE [Concomitant]
  137. VITAMIN B6 [Concomitant]
     Active Substance: PYRIDOXINE HYDROCHLORIDE
  138. MIDAZOLAM [Concomitant]
     Active Substance: MIDAZOLAM
  139. ROCURONIUM [Concomitant]
     Active Substance: ROCURONIUM BROMIDE
  140. MORPHINE [Concomitant]
     Active Substance: MORPHINE
  141. SUCCINYLCHOLINE [Concomitant]
     Active Substance: SUCCINYLCHOLINE
  142. LACTATED RINGERS SOLUTION [Concomitant]
     Active Substance: CALCIUM CHLORIDE\POTASSIUM CHLORIDE\SODIUM CHLORIDE\SODIUM LACTATE
  143. PROTHROMBIN [Concomitant]
     Active Substance: PROTHROMBIN
  144. HYDROMORPHONE [Concomitant]
     Active Substance: HYDROMORPHONE
  145. WARFARIN [Concomitant]
     Active Substance: WARFARIN
     Indication: Anticoagulant therapy
  146. ZETIA [Concomitant]
     Active Substance: EZETIMIBE
  147. ACETYLCYSTEINE [Concomitant]
     Active Substance: ACETYLCYSTEINE
  148. GLYCOPYRROLATE [Concomitant]
     Active Substance: GLYCOPYRROLATE
  149. LIDOCAINE HYDROCHLORIDE [Concomitant]
     Active Substance: LIDOCAINE HYDROCHLORIDE
  150. NEOSTIGMINE [Concomitant]
     Active Substance: NEOSTIGMINE
  151. FENTANYL CITRATE [Concomitant]
     Active Substance: FENTANYL CITRATE
  152. MIDAZOLAM HYDROCHLORIDE [Concomitant]
     Active Substance: MIDAZOLAM HYDROCHLORIDE
  153. ONDANSETRON HCL [Concomitant]
     Active Substance: ONDANSETRON HYDROCHLORIDE
  154. AMARYL [Concomitant]
     Active Substance: GLIMEPIRIDE

REACTIONS (9)
  - Genital infection [Unknown]
  - Fournier^s gangrene [Unknown]
  - Necrotising soft tissue infection [Unknown]
  - Sepsis [Unknown]
  - Septic shock [Recovered/Resolved]
  - Abscess [Unknown]
  - Acute respiratory failure [Unknown]
  - Cellulitis [Unknown]
  - Depression [Unknown]

NARRATIVE: CASE EVENT DATE: 20180801
